FAERS Safety Report 5504201-0 (Version None)
Quarter: 2007Q4

REPORT INFORMATION
  Report Type: 
  Country: None (occurrence: None)
  Receive Date: 20071101
  Receipt Date: 20071029
  Transmission Date: 20080405
  Serious: Yes (Hospitalization)
  Sender: FDA-Public Use
  Company Number: B0492058A

PATIENT
  Age: 40 Year
  Sex: Female

DRUGS (7)
  1. PAXIL [Suspect]
     Indication: DEPRESSION
     Dosage: 600MG PER DAY
     Route: 048
     Dates: start: 20070507, end: 20070921
  2. SERTRALINE HYDROCHLORIDE [Concomitant]
     Route: 048
  3. SERTRALINE HYDROCHLORIDE [Concomitant]
     Route: 048
     Dates: start: 20070921, end: 20070921
  4. SEROQUEL [Concomitant]
     Route: 048
  5. SEROQUEL [Concomitant]
     Route: 048
     Dates: start: 20070921, end: 20070921
  6. VALPROATE SODIUM [Concomitant]
     Route: 048
  7. VALPROATE SODIUM [Concomitant]
     Route: 048
     Dates: start: 20070921, end: 20070921

REACTIONS (6)
  - HYPERSOMNIA [None]
  - INTENTIONAL OVERDOSE [None]
  - LETHARGY [None]
  - SOMNOLENCE [None]
  - STUPOR [None]
  - SUICIDE ATTEMPT [None]
